FAERS Safety Report 4606228-X (Version None)
Quarter: 2005Q1

REPORT INFORMATION
  Report Type: 
  Country: None (occurrence: None)
  Receive Date: 20050311
  Receipt Date: 20050301
  Transmission Date: 20050727
  Serious: Yes (Hospitalization, Other)
  Sender: FDA-Public Use
  Company Number: SK-ABBOTT-05P-260-0292548-00

PATIENT
  Sex: Female
  Weight: 76 kg

DRUGS (9)
  1. TARKA [Suspect]
     Indication: HYPERTENSION
     Dosage: 180 MG/ 2 MG
     Route: 048
     Dates: end: 20050201
  2. HYDROCHLOROTHIAZIDE [Concomitant]
     Indication: HYPERTENSION
     Dosage: 1/2 TABLET DAILY
     Route: 048
  3. THEOPHYLLINE [Concomitant]
     Indication: DRUG USE FOR UNKNOWN INDICATION
     Route: 048
  4. CYNT [Concomitant]
     Indication: HYPERTENSION
     Route: 048
  5. TIAPROFENIC ACID [Concomitant]
     Indication: DRUG USE FOR UNKNOWN INDICATION
     Route: 048
  6. EGILOK [Concomitant]
     Indication: DRUG USE FOR UNKNOWN INDICATION
     Dosage: 1-0-1 TBL
  7. FUROSEMIDE [Concomitant]
     Indication: DRUG USE FOR UNKNOWN INDICATION
     Dosage: 1/2-0-0 TBL
  8. TRANDOLAPRIL [Concomitant]
     Indication: HYPERTENSION
     Route: 048
  9. ENOXAPARIN SODIUM [Concomitant]
     Indication: DRUG USE FOR UNKNOWN INDICATION

REACTIONS (24)
  - ABNORMAL BEHAVIOUR [None]
  - ARRHYTHMIA [None]
  - BLOOD CREATINE PHOSPHOKINASE MB INCREASED [None]
  - CARDIAC DISCOMFORT [None]
  - CARDIAC FAILURE [None]
  - CHOLECYSTITIS CHRONIC [None]
  - CORONARY ARTERY DISEASE [None]
  - DIABETES MELLITUS NON-INSULIN-DEPENDENT [None]
  - DIASTOLIC DYSFUNCTION [None]
  - DISORIENTATION [None]
  - HEART RATE DECREASED [None]
  - HYPOCHROMIC ANAEMIA [None]
  - HYPOSIDERAEMIA [None]
  - MITRAL VALVE INCOMPETENCE [None]
  - MOBILITY DECREASED [None]
  - OVERWEIGHT [None]
  - POLYMYOSITIS [None]
  - POLYNEUROPATHY [None]
  - PYREXIA [None]
  - RENAL DISORDER [None]
  - RENAL FAILURE CHRONIC [None]
  - RHABDOMYOLYSIS [None]
  - ULTRASOUND ABDOMEN ABNORMAL [None]
  - X-RAY LIMB ABNORMAL [None]
